FAERS Safety Report 12645794 (Version 1)
Quarter: 2016Q3

REPORT INFORMATION
  Report Type: Spontaneous
  Country: US (occurrence: US)
  Receive Date: 20160811
  Receipt Date: 20160811
  Transmission Date: 20161109
  Serious: No
  Sender: FDA-Public Use
  Company Number: US-ENDO PHARMACEUTICALS INC.-2016-000251

PATIENT
  Sex: Female
  Weight: 127.12 kg

DRUGS (5)
  1. PREDNISONE TABLETS [Suspect]
     Active Substance: PREDNISONE
     Indication: RHEUMATOID ARTHRITIS
     Route: 065
  2. PREDNISONE TABLETS [Suspect]
     Active Substance: PREDNISONE
     Route: 065
     Dates: start: 2011
  3. XELJANZ [Concomitant]
     Active Substance: TOFACITINIB CITRATE
     Indication: RHEUMATOID ARTHRITIS
  4. TYLENOL NO.4 [Concomitant]
     Indication: PAIN
  5. PREDNISONE TABLETS [Suspect]
     Active Substance: PREDNISONE
     Route: 065

REACTIONS (4)
  - Nausea [Unknown]
  - Dysuria [Unknown]
  - Gait disturbance [Unknown]
  - Pain in extremity [Unknown]
